FAERS Safety Report 4814450-2 (Version None)
Quarter: 2005Q4

REPORT INFORMATION
  Report Type: 
  Country: None (occurrence: None)
  Receive Date: 20051028
  Receipt Date: 20050829
  Transmission Date: 20060501
  Serious: No
  Sender: FDA-Public Use
  Company Number: US-GLAXOSMITHKLINE-A0572210A

PATIENT
  Age: 78 Year
  Sex: Female

DRUGS (6)
  1. ADVAIR DISKUS 100/50 [Suspect]
     Indication: ASTHMA
     Route: 055
     Dates: start: 20050818
  2. TOPROL-XL [Concomitant]
  3. IMDUR [Concomitant]
  4. SINGULAIR [Concomitant]
  5. LASIX [Concomitant]
  6. VITORIN [Concomitant]

REACTIONS (5)
  - COUGH [None]
  - RENAL PAIN [None]
  - RESPIRATORY TRACT CONGESTION [None]
  - THROAT IRRITATION [None]
  - WHEEZING [None]
